FAERS Safety Report 19683955 (Version 2)
Quarter: 2021Q3

REPORT INFORMATION
  Report Type: Report from Study
  Country: DE (occurrence: DE)
  Receive Date: 20210811
  Receipt Date: 20210909
  Transmission Date: 20211014
  Serious: Yes (Hospitalization)
  Sender: FDA-Public Use
  Company Number: DE-SA-2019SA052146

PATIENT
  Age: 56 Year
  Sex: Female
  Weight: 84 kg

DRUGS (25)
  1. ACICLOVIR [Concomitant]
     Active Substance: ACYCLOVIR
     Indication: PROPHYLAXIS
     Dosage: 200 MG
     Dates: start: 20171106, end: 20171208
  2. VIGIL [METRONIDAZOLE] [Concomitant]
     Indication: FATIGUE
  3. GELOMYRTOL [Concomitant]
     Active Substance: HERBALS
     Indication: NASOPHARYNGITIS
     Dosage: UNK
     Route: 065
     Dates: start: 20180403, end: 20180405
  4. VITAMIN D [VITAMIN D NOS] [Concomitant]
     Active Substance: VITAMIN D NOS
     Indication: VITAMIN D DEFICIENCY
     Dosage: 200 IU
     Route: 048
     Dates: start: 20170601, end: 20180301
  5. PARACETAMOL [Concomitant]
     Active Substance: ACETAMINOPHEN
     Indication: ENTHESOPATHY
     Dosage: 500
     Route: 048
     Dates: start: 20210407, end: 20210414
  6. PREGABALIN. [Concomitant]
     Active Substance: PREGABALIN
     Indication: PAIN
     Dosage: 150 MG
     Route: 048
     Dates: start: 20130217
  7. PANTOZOL [Concomitant]
     Active Substance: PANTOPRAZOLE SODIUM
     Indication: ENTHESOPATHY
     Dosage: 40
     Dates: start: 20210407, end: 20210414
  8. PREGABALIN. [Concomitant]
     Active Substance: PREGABALIN
     Indication: PAIN
     Dosage: 150 MG IU
     Route: 065
     Dates: start: 20130217
  9. L?THYROX [Concomitant]
     Active Substance: LEVOTHYROXINE SODIUM
     Dosage: 100 MG
     Route: 048
     Dates: start: 20170701
  10. CORTISONE [Concomitant]
     Active Substance: CORTISONE
     Indication: BACK PAIN
     Dosage: 5 MG, QD (1?0?0)
     Dates: start: 20190623, end: 20190714
  11. L?THYROX [Concomitant]
     Active Substance: LEVOTHYROXINE SODIUM
     Indication: HYPOTHYROIDISM
     Dosage: 100 MG IU
     Route: 065
     Dates: start: 20170701
  12. PANTOPRAZOLE [Concomitant]
     Active Substance: PANTOPRAZOLE
     Indication: ABDOMINAL DISCOMFORT
     Dosage: 20 MG
     Dates: start: 20181013
  13. ALEMTUZUMAB [Suspect]
     Active Substance: ALEMTUZUMAB
     Indication: MULTIPLE SCLEROSIS
     Dosage: 12 MG
     Route: 041
     Dates: start: 20140825, end: 20140829
  14. REMIFEMIN PLUS [Concomitant]
     Active Substance: BLACK COHOSH\HERBALS\HYPERICUM PERFORATUM
     Indication: MENOPAUSE
     Dates: start: 20160601, end: 20180401
  15. VITAMIN D [VITAMIN D NOS] [Concomitant]
     Active Substance: VITAMIN D NOS
     Dosage: 3500 IU
     Route: 048
     Dates: start: 20180302
  16. MYOPRIDIN [Concomitant]
     Indication: BACK PAIN
     Dosage: 3 MG
     Dates: start: 20190731
  17. NOVAMINSULFON [Concomitant]
     Active Substance: METAMIZOLE
     Indication: ENTHESOPATHY
     Dosage: 500
     Dates: start: 20210407
  18. PALEXIA [Concomitant]
     Active Substance: TAPENTADOL HYDROCHLORIDE
     Indication: ENTHESOPATHY
     Dates: start: 20210407
  19. TILIDINE [Concomitant]
     Active Substance: TILIDINE
     Indication: BACK PAIN
     Dosage: 100 MG
     Dates: start: 20190528
  20. PREDNI POS [Concomitant]
     Indication: EYE INFLAMMATION
     Dosage: 1 %
     Dates: start: 20180308, end: 20180312
  21. ALEMTUZUMAB [Suspect]
     Active Substance: ALEMTUZUMAB
     Dosage: 12 MG
     Route: 041
     Dates: start: 20150907, end: 20150909
  22. VIGIL [MODAFINIL] [Concomitant]
     Indication: FATIGUE
     Dosage: 100 MG IU
     Route: 065
     Dates: start: 20170306
  23. VIGIL [MODAFINIL] [Concomitant]
     Dosage: 100 MG
     Dates: start: 20170306
  24. ACC 200 [Concomitant]
     Active Substance: ACETYLCYSTEINE
     Indication: NASOPHARYNGITIS
     Dosage: 200 IU
     Route: 048
     Dates: start: 20180322, end: 20180401
  25. CORTISONE [Concomitant]
     Active Substance: CORTISONE
     Dosage: 40 MG, QD (1?0?0)
     Dates: start: 20190528, end: 20190605

REACTIONS (13)
  - Heat exhaustion [Recovered/Resolved]
  - Inflammation [Not Recovered/Not Resolved]
  - Back pain [Not Recovered/Not Resolved]
  - Psoriasis [Not Recovered/Not Resolved]
  - Enthesopathy [Recovered/Resolved]
  - Osteoarthritis [Recovered/Resolved]
  - Oral herpes [Recovered/Resolved]
  - Vitamin D deficiency [Not Recovered/Not Resolved]
  - Bone contusion [Recovered/Resolved]
  - Intervertebral discitis [Not Recovered/Not Resolved]
  - Rash [Not Recovered/Not Resolved]
  - Nasopharyngitis [Recovered/Resolved]
  - Eye inflammation [Recovered/Resolved]

NARRATIVE: CASE EVENT DATE: 20160523
